FAERS Safety Report 8835993 (Version 1)
Quarter: 2012Q4

REPORT INFORMATION
  Report Type: 
  Country: US (occurrence: US)
  Receive Date: 20121011
  Receipt Date: 20121011
  Transmission Date: 20130627
  Serious: Yes (Disabling)
  Sender: FDA-Public Use
  Company Number: US-009507513-1210USA002890

PATIENT

DRUGS (1)
  1. DULERA [Suspect]
     Route: 055

REACTIONS (3)
  - Dyspnoea [Unknown]
  - Accident [Unknown]
  - Drug dose omission [Unknown]
